FAERS Safety Report 10556758 (Version 2)
Quarter: 2014Q4

REPORT INFORMATION
  Report Type: Spontaneous
  Country: GB (occurrence: GB)
  Receive Date: 20141031
  Receipt Date: 20141031
  Transmission Date: 20150529
  Serious: Yes (Hospitalization)
  Sender: FDA-Public Use
  Company Number: GB-BAYER-2014-080544

PATIENT
  Age: 78 Year
  Sex: Female
  Weight: 49 kg

DRUGS (16)
  1. DIGOXIN. [Concomitant]
     Active Substance: DIGOXIN
  2. LAXIDO [Concomitant]
     Active Substance: POLYETHYLENE GLYCOL 3350\POTASSIUM CHLORIDE\SODIUM BICARBONATE\SODIUM CHLORIDE
  3. XARELTO [Suspect]
     Active Substance: RIVAROXABAN
     Indication: ATRIAL FLUTTER
     Dosage: 15 MG, QD
     Route: 048
     Dates: start: 201309, end: 20140509
  4. XARELTO [Suspect]
     Active Substance: RIVAROXABAN
     Indication: CEREBROVASCULAR ACCIDENT PROPHYLAXIS
  5. GTN [Concomitant]
     Active Substance: NITROGLYCERIN
     Dosage: UNK
  6. DIAZEPAM. [Concomitant]
     Active Substance: DIAZEPAM
  7. ACETYLSALICYLIC ACID({=100 MG) [Suspect]
     Active Substance: ASPIRIN
  8. RAMIPRIL [RAMIPRIL] [Concomitant]
  9. TRAMADOL [Concomitant]
     Active Substance: TRAMADOL
  10. BISOPROLOL [BISOPROLOL] [Concomitant]
  11. CHLORPROMAZINE [Concomitant]
     Active Substance: CHLORPROMAZINE
  12. PARACETAMOL [Concomitant]
     Active Substance: ACETAMINOPHEN
  13. FUROSEMIDE. [Concomitant]
     Active Substance: FUROSEMIDE
  14. MOVELAT [MUCOPOLYSACCHARIDE POLYSULFURIC ACID ESTER,SALICYLIC ACID [Concomitant]
  15. DOSULEPIN HYDROCHLORIDE [Concomitant]
     Active Substance: DOTHIEPIN HYDROCHLORIDE
  16. OMEPRAZOLE. [Concomitant]
     Active Substance: OMEPRAZOLE

REACTIONS (2)
  - Malaise [Unknown]
  - Anaemia [Recovered/Resolved]

NARRATIVE: CASE EVENT DATE: 20140508
